FAERS Safety Report 8030623-2 (Version None)
Quarter: 2012Q1

REPORT INFORMATION
  Report Type: 
  Country: None (occurrence: None)
  Receive Date: 20120109
  Receipt Date: 20111229
  Transmission Date: 20120608
  Serious: Yes (Other)
  Sender: FDA-Public Use
  Company Number: US-JNJFOC-20120100361

PATIENT
  Sex: Male
  Weight: 102.06 kg

DRUGS (10)
  1. HYDROCHLOROTHIAZIDE [Concomitant]
     Indication: DIURETIC THERAPY
     Route: 065
     Dates: end: 20111221
  2. POTASSIUM CITRATE [Concomitant]
     Dosage: DAILY FOR 3 DAYS
     Route: 048
     Dates: start: 20111221, end: 20111201
  3. POTASSIUM CITRATE [Concomitant]
     Route: 048
     Dates: start: 20111201
  4. METFORMIN HCL [Concomitant]
     Route: 048
     Dates: start: 20110701
  5. POTASSIUM CITRATE [Concomitant]
     Indication: PRODUCT USED FOR UNKNOWN INDICATION
     Route: 048
  6. ZYTIGA [Suspect]
     Indication: PROSTATE CANCER
     Route: 048
     Dates: start: 20111015, end: 20111222
  7. METFORMIN HCL [Concomitant]
     Indication: PRODUCT USED FOR UNKNOWN INDICATION
     Route: 048
     Dates: start: 20111221
  8. PREDNISONE TAB [Suspect]
     Indication: PROSTATE CANCER
     Route: 048
     Dates: start: 20111015
  9. PREDNISONE TAB [Suspect]
     Dosage: DOSE TAPERED; LOWERED EVERY 4 DAYS REDUCING DOSE
     Route: 048
     Dates: start: 20111221, end: 20111227
  10. VASOTEC [Concomitant]
     Indication: BLOOD PRESSURE
     Route: 065

REACTIONS (8)
  - PROSTATIC SPECIFIC ANTIGEN INCREASED [None]
  - HYPERPHAGIA [None]
  - BLOOD GLUCOSE INCREASED [None]
  - BLOOD CREATININE INCREASED [None]
  - DIARRHOEA [None]
  - URINARY RETENTION [None]
  - BLOOD POTASSIUM DECREASED [None]
  - BLOOD UREA INCREASED [None]
